FAERS Safety Report 15397685 (Version 1)
Quarter: 2018Q3

REPORT INFORMATION
  Report Type: Spontaneous
  Country: US (occurrence: US)
  Receive Date: 20180911
  Receipt Date: 20180911
  Transmission Date: 20181010
  Serious: Yes (Hospitalization)
  Sender: FDA-Public Use
  Company Number: None

PATIENT
  Age: 71 Year
  Sex: Male
  Weight: 92.3 kg

DRUGS (2)
  1. AZACITIDINE. [Suspect]
     Active Substance: AZACITIDINE
  2. PEMBROLIZUMAB. [Suspect]
     Active Substance: PEMBROLIZUMAB

REACTIONS (10)
  - Rash maculo-papular [None]
  - Headache [None]
  - Feeling abnormal [None]
  - Neck pain [None]
  - Asthenia [None]
  - Posture abnormal [None]
  - Meningitis aseptic [None]
  - Pyrexia [None]
  - Chronic sinusitis [None]
  - Liver function test increased [None]

NARRATIVE: CASE EVENT DATE: 20180907
